FAERS Safety Report 19928451 (Version 1)
Quarter: 2021Q4

REPORT INFORMATION
  Report Type: Spontaneous
  Country: US (occurrence: US)
  Receive Date: 20211007
  Receipt Date: 20211007
  Transmission Date: 20220303
  Serious: Yes (Life-Threatening, Hospitalization)
  Sender: FDA-Public Use
  Company Number: US-JNJFOC-20210952928

PATIENT
  Age: 43 Year
  Sex: Female
  Weight: 78 kg

DRUGS (2)
  1. TYLENOL EXTRA STRENGTH [Suspect]
     Active Substance: ACETAMINOPHEN
     Indication: Dysmenorrhoea
     Dosage: APPROXIMATELY 28000MG FOR (APPROXIMATE 4 DAYS)
     Route: 048
  2. PAXIL [Concomitant]
     Active Substance: PAROXETINE HYDROCHLORIDE

REACTIONS (9)
  - Acute hepatic failure [Recovered/Resolved]
  - Acute kidney injury [Recovered/Resolved]
  - Cerebral infarction [Recovered/Resolved]
  - Cholecystitis [Recovered/Resolved]
  - Pancreatitis [Recovered/Resolved]
  - Staphylococcal infection [Recovered/Resolved]
  - Staphylococcal infection [Recovered/Resolved]
  - Enterococcal infection [Recovered/Resolved]
  - Accidental overdose [Recovered/Resolved]

NARRATIVE: CASE EVENT DATE: 20010405
